FAERS Safety Report 12242396 (Version 1)
Quarter: 2016Q2

REPORT INFORMATION
  Report Type: Report from Study
  Country: US (occurrence: US)
  Receive Date: 20160406
  Receipt Date: 20160406
  Transmission Date: 20160815
  Serious: No
  Sender: FDA-Public Use
  Company Number: US-ABBVIE-16P-163-1533219-00

PATIENT
  Sex: Female

DRUGS (1)
  1. DUOPA [Suspect]
     Active Substance: CARBIDOPA\LEVODOPA
     Indication: PARKINSON^S DISEASE
     Route: 065
     Dates: end: 20151230

REACTIONS (4)
  - Device deployment issue [Unknown]
  - Device dislocation [Unknown]
  - On and off phenomenon [Unknown]
  - Anastomotic ulcer [Unknown]

NARRATIVE: CASE EVENT DATE: 2016
